FAERS Safety Report 9820972 (Version 1)
Quarter: 2014Q1

REPORT INFORMATION
  Report Type: Spontaneous
  Country: US (occurrence: None)
  Receive Date: 20140114
  Receipt Date: 20140114
  Transmission Date: 20141002
  Serious: Yes (Hospitalization)
  Sender: FDA-Public Use
  Company Number: None

PATIENT
  Age: 55 Year
  Sex: Male
  Weight: 79.38 kg

DRUGS (2)
  1. DILAUDID [Suspect]
     Indication: ARTHRALGIA
     Dosage: 1 EVERY 8 HRS THREE TIMES DAILY TAKEN BY MOUTH
     Route: 048
     Dates: start: 20131219, end: 20131225
  2. DILAUDID [Suspect]
     Indication: BACK PAIN
     Dosage: 1 EVERY 8 HRS THREE TIMES DAILY TAKEN BY MOUTH
     Route: 048
     Dates: start: 20131219, end: 20131225

REACTIONS (6)
  - Panic attack [None]
  - Chest discomfort [None]
  - Heart rate increased [None]
  - Blood pressure increased [None]
  - Anxiety [None]
  - Product substitution issue [None]
